FAERS Safety Report 7014220-3 (Version None)
Quarter: 2010Q3

REPORT INFORMATION
  Report Type: 
  Country: None (occurrence: None)
  Receive Date: 20100927
  Receipt Date: 20100915
  Transmission Date: 20110219
  Serious: Yes (Hospitalization)
  Sender: FDA-Public Use
  Company Number: US-JNJFOC-20100906061

PATIENT
  Sex: Female
  Weight: 82 kg

DRUGS (8)
  1. DOXORUBICIN HYDROCHLORIDE [Suspect]
     Indication: OVARIAN CANCER
     Dosage: SECOND INFUSION
     Route: 042
  2. DOXORUBICIN HYDROCHLORIDE [Suspect]
     Dosage: REGIMEN 1. 28-DAY CYCLE.
     Route: 042
  3. IMC-3G3 (RH ANTI-PDGFRA MAB) [Suspect]
     Indication: OVARIAN CANCER
     Dosage: REGIMEN 1.  EVERY 14 DAYS ON DAYS 1 AND 15 OF A 28-DAY CYCLE.
     Route: 042
  4. IMC-3G3 (RH ANTI-PDGFRA MAB) [Suspect]
     Dosage: SECOND INFUSION
     Route: 042
  5. BUPROPION HYDROCHLORIDE [Concomitant]
     Route: 065
  6. CITALOPRAM HYDROBROMIDE [Concomitant]
     Route: 065
  7. LORAZEPAM [Concomitant]
     Route: 065
  8. NIFEDIPINE [Concomitant]
     Route: 065

REACTIONS (1)
  - SMALL INTESTINAL OBSTRUCTION [None]
